FAERS Safety Report 8479188-1 (Version None)
Quarter: 2012Q2

REPORT INFORMATION
  Report Type: 
  Country: None (occurrence: None)
  Receive Date: 20120629
  Receipt Date: 20120621
  Transmission Date: 20120825
  Serious: Yes (Hospitalization)
  Sender: FDA-Public Use
  Company Number: US-JNJFOC-20120608566

PATIENT
  Sex: Male

DRUGS (16)
  1. OMEPRAZOLE [Concomitant]
  2. SINGULAIR [Concomitant]
  3. REMICADE [Suspect]
     Indication: INFLAMMATORY BOWEL DISEASE
     Route: 042
     Dates: start: 20070324, end: 20071015
  4. CLARITIN [Concomitant]
  5. LOPRESSOR [Concomitant]
  6. COMBIVENT [Concomitant]
  7. PROBIOTICS [Concomitant]
  8. PIMECROLIMUS [Concomitant]
  9. PROAIR HFA [Concomitant]
  10. IMODIUM [Concomitant]
  11. ZOFRAN [Concomitant]
  12. BENTYL [Concomitant]
  13. ROXICET [Concomitant]
  14. LEXAPRO [Concomitant]
  15. ANTIBIOTICS FOR IBD [Concomitant]
  16. TACROLIMUS [Concomitant]

REACTIONS (1)
  - POSTURAL ORTHOSTATIC TACHYCARDIA SYNDROME [None]
